FAERS Safety Report 6681626-1 (Version None)
Quarter: 2010Q2

REPORT INFORMATION
  Report Type: 
  Country: None (occurrence: None)
  Receive Date: 20100414
  Receipt Date: 20100401
  Transmission Date: 20101027
  Serious: Yes (Other)
  Sender: FDA-Public Use
  Company Number: BE-ELI_LILLY_AND_COMPANY-BE201002000832

PATIENT
  Sex: Female
  Weight: 67 kg

DRUGS (3)
  1. CYMBALTA [Suspect]
     Dosage: 60 MG, DAILY (1/D)
     Route: 048
     Dates: start: 20070725, end: 20100125
  2. LORMETAZEPAM [Concomitant]
     Dosage: 2 MG, DAILY (1/D)
     Route: 065
     Dates: start: 20070725
  3. DEANXIT [Concomitant]
     Dosage: UNK, DAILY (1/D)
     Route: 065
     Dates: start: 20070718

REACTIONS (5)
  - ALANINE AMINOTRANSFERASE INCREASED [None]
  - ASPARTATE AMINOTRANSFERASE INCREASED [None]
  - BLOOD ALKALINE PHOSPHATASE INCREASED [None]
  - BLOOD LACTATE DEHYDROGENASE INCREASED [None]
  - GAMMA-GLUTAMYLTRANSFERASE INCREASED [None]
